FAERS Safety Report 8441876 (Version 4)
Quarter: 2012Q4

REPORT INFORMATION
  Report Type: 
  Country: CA (occurrence: CA)
  Receive Date: 20120305
  Receipt Date: 20121018
  Transmission Date: 20130627
  Serious: Yes (Other)
  Sender: FDA-Public Use
  Company Number: PHHY2012CA018412

PATIENT
  Age: 72 None
  Sex: Female

DRUGS (1)
  1. GILENYA [Suspect]
     Indication: RELAPSING-REMITTING MULTIPLE SCLEROSIS
     Dosage: 0.5 mg, daily
     Route: 048
     Dates: start: 20111209, end: 20120814

REACTIONS (7)
  - White blood cell disorder [Unknown]
  - Cellulitis [Recovering/Resolving]
  - Oedema peripheral [Recovered/Resolved]
  - Erythema [Recovering/Resolving]
  - Blood pressure fluctuation [Unknown]
  - Gait disturbance [Unknown]
  - Vision blurred [Unknown]
